FAERS Safety Report 14093313 (Version 1)
Quarter: 2017Q4

REPORT INFORMATION
  Report Type: Spontaneous
  Country: US (occurrence: US)
  Receive Date: 20171016
  Receipt Date: 20171016
  Transmission Date: 20180321
  Serious: Yes (Disabling)
  Sender: FDA-Public Use
  Company Number: None

PATIENT
  Age: 58 Year
  Sex: Female
  Weight: 40.5 kg

DRUGS (8)
  1. CALCIUM [Concomitant]
     Active Substance: CALCIUM
  2. CREON [Suspect]
     Active Substance: PANCRELIPASE AMYLASE\PANCRELIPASE LIPASE\PANCRELIPASE PROTEASE
     Indication: DYSPEPSIA
     Dosage: ?          OTHER STRENGTH:USP UNITS;QUANTITY:1 CAPSULE(S);?
     Route: 048
     Dates: start: 20171013, end: 20171014
  3. CLARITIN [Concomitant]
     Active Substance: LORATADINE
  4. ATIVAN [Concomitant]
     Active Substance: LORAZEPAM
  5. RELPAX [Concomitant]
     Active Substance: ELETRIPTAN HYDROBROMIDE
  6. VITAMIN B12 [Concomitant]
     Active Substance: CYANOCOBALAMIN
  7. VITAMIN D [Concomitant]
     Active Substance: CHOLECALCIFEROL
  8. MAGNESIUM [Concomitant]
     Active Substance: MAGNESIUM

REACTIONS (9)
  - Headache [None]
  - Arthralgia [None]
  - Nausea [None]
  - Dizziness [None]
  - Mobility decreased [None]
  - Abdominal pain upper [None]
  - Migraine [None]
  - Fatigue [None]
  - Influenza like illness [None]

NARRATIVE: CASE EVENT DATE: 20171014
